FAERS Safety Report 21310952 (Version 1)
Quarter: 2022Q3

REPORT INFORMATION
  Report Type: Spontaneous
  Country: US (occurrence: None)
  Receive Date: 20220909
  Receipt Date: 20220909
  Transmission Date: 20221027
  Serious: No
  Sender: FDA-Public Use
  Company Number: US-ARIS GLOBAL-202112-2281

PATIENT
  Sex: Female

DRUGS (11)
  1. OXERVATE [Suspect]
     Active Substance: CENEGERMIN-BKBJ
     Indication: Neurotrophic keratopathy
     Route: 047
     Dates: start: 20210607, end: 20210804
  2. OXERVATE [Suspect]
     Active Substance: CENEGERMIN-BKBJ
     Route: 047
     Dates: start: 20210901, end: 20211026
  3. OXERVATE [Suspect]
     Active Substance: CENEGERMIN-BKBJ
     Route: 047
     Dates: start: 20211202
  4. POTASSIUM GLUCONATE [Concomitant]
     Active Substance: POTASSIUM GLUCONATE
  5. PROBIOTIC 10B CELL [Concomitant]
  6. OMEPRAZOLE\SODIUM BICARBONATE [Concomitant]
     Active Substance: OMEPRAZOLE\SODIUM BICARBONATE
  7. CHLORTABS [Concomitant]
     Active Substance: CHLORPHENIRAMINE MALEATE
  8. AZASITE [Concomitant]
     Active Substance: AZITHROMYCIN MONOHYDRATE
  9. PROLENSA [Concomitant]
     Active Substance: BROMFENAC SODIUM
  10. LOTEMAX [Concomitant]
     Active Substance: LOTEPREDNOL ETABONATE
  11. ACYCLOVIR [Concomitant]
     Active Substance: ACYCLOVIR

REACTIONS (1)
  - Illness [Unknown]
